FAERS Safety Report 22072547 (Version 1)
Quarter: 2023Q1

REPORT INFORMATION
  Report Type: Spontaneous
  Country: CN (occurrence: CN)
  Receive Date: 20230308
  Receipt Date: 20230308
  Transmission Date: 20230417
  Serious: Yes (Other)
  Sender: FDA-Public Use
  Company Number: CN-ABBOTT-2023A-1360589

PATIENT
  Age: 54 Year
  Sex: Female

DRUGS (1)
  1. FENOFIBRATE [Suspect]
     Active Substance: FENOFIBRATE
     Indication: Lipids increased
     Dosage: UNIT DOSE AND DAILY DOSE 1 CAPSULE
     Route: 048
     Dates: start: 20230219, end: 20230221

REACTIONS (1)
  - Vertigo [Recovered/Resolved]

NARRATIVE: CASE EVENT DATE: 20230220
